FAERS Safety Report 25607188 (Version 1)
Quarter: 2025Q3

REPORT INFORMATION
  Report Type: Spontaneous
  Country: US (occurrence: None)
  Receive Date: 20250725
  Receipt Date: 20250725
  Transmission Date: 20251020
  Serious: Yes (Hospitalization)
  Sender: FDA-CTU
  Company Number: None

PATIENT
  Age: 72 Year
  Sex: Female

DRUGS (1)
  1. CAPECITABINE [Suspect]
     Active Substance: CAPECITABINE

REACTIONS (7)
  - Diarrhoea [None]
  - Abdominal pain [None]
  - Dehydration [None]
  - Weight decreased [None]
  - Gastrointestinal inflammation [None]
  - Aortic thrombosis [None]
  - Hypophagia [None]
